FAERS Safety Report 23913731 (Version 4)
Quarter: 2024Q4

REPORT INFORMATION
  Report Type: Report from Study
  Country: DE (occurrence: DE)
  Receive Date: 20240529
  Receipt Date: 20241211
  Transmission Date: 20250115
  Serious: Yes (Hospitalization, Other)
  Sender: ROCHE
  Company Number: DE-ROCHE-3568463

PATIENT
  Sex: Male

DRUGS (55)
  1. RITUXIMAB [Suspect]
     Active Substance: RITUXIMAB
     Indication: Product used for unknown indication
     Route: 065
  2. RITUXIMAB [Suspect]
     Active Substance: RITUXIMAB
     Route: 065
     Dates: start: 201702
  3. RITUXIMAB [Suspect]
     Active Substance: RITUXIMAB
     Route: 065
     Dates: start: 201709
  4. RITUXIMAB [Suspect]
     Active Substance: RITUXIMAB
     Route: 065
     Dates: start: 201708
  5. RITUXIMAB [Suspect]
     Active Substance: RITUXIMAB
     Route: 065
     Dates: start: 202010
  6. TOCILIZUMAB [Suspect]
     Active Substance: TOCILIZUMAB
     Indication: Product used for unknown indication
     Route: 065
     Dates: start: 201605, end: 201606
  7. TOCILIZUMAB [Suspect]
     Active Substance: TOCILIZUMAB
     Route: 065
     Dates: start: 201608, end: 201611
  8. ORENCIA [Suspect]
     Active Substance: ABATACEPT
     Indication: Product used for unknown indication
     Route: 065
     Dates: start: 201604, end: 201604
  9. METHOTREXATE SODIUM [Suspect]
     Active Substance: METHOTREXATE SODIUM
     Indication: Product used for unknown indication
     Dosage: 10 MG, QW
     Route: 065
     Dates: end: 202308
  10. METHOTREXATE SODIUM [Suspect]
     Active Substance: METHOTREXATE SODIUM
     Dosage: 10 MG, QW
     Route: 065
  11. METHOTREXATE SODIUM [Suspect]
     Active Substance: METHOTREXATE SODIUM
     Dosage: 10 MG, QW
     Route: 065
  12. METHOTREXATE SODIUM [Suspect]
     Active Substance: METHOTREXATE SODIUM
     Dosage: 10 MG, QW
     Route: 065
  13. RITUXIMAB [Suspect]
     Active Substance: RITUXIMAB
     Indication: Rheumatoid arthritis
     Route: 042
  14. RITUXIMAB [Suspect]
     Active Substance: RITUXIMAB
     Dosage: 500 MG, UNK
     Route: 042
     Dates: start: 20180209, end: 20230626
  15. RITUXIMAB [Suspect]
     Active Substance: RITUXIMAB
     Dosage: 500 MG, UNK
     Route: 042
     Dates: start: 201802, end: 20230626
  16. RITUXIMAB [Suspect]
     Active Substance: RITUXIMAB
     Dosage: 500 MG, UNK
     Route: 042
     Dates: start: 201809, end: 20230626
  17. RITUXIMAB [Suspect]
     Active Substance: RITUXIMAB
     Dosage: 500 MG, UNK
     Route: 042
     Dates: start: 201903, end: 20230626
  18. RITUXIMAB [Suspect]
     Active Substance: RITUXIMAB
     Dosage: 500 MG, UNK
     Route: 042
     Dates: start: 202004, end: 20230626
  19. RITUXIMAB [Suspect]
     Active Substance: RITUXIMAB
     Dosage: 500 MG, UNK
     Route: 042
     Dates: start: 202306, end: 20230626
  20. SARILUMAB [Suspect]
     Active Substance: SARILUMAB
     Indication: Product used for unknown indication
     Route: 065
  21. ERELZI [Suspect]
     Active Substance: ETANERCEPT-SZZS
     Indication: Product used for unknown indication
     Route: 065
  22. ERELZI [Suspect]
     Active Substance: ETANERCEPT-SZZS
     Route: 065
  23. METAMIZOLE [Suspect]
     Active Substance: METAMIZOLE
     Indication: Product used for unknown indication
     Route: 065
  24. CHOLECALCIFEROL [Concomitant]
     Active Substance: CHOLECALCIFEROL
     Indication: Product used for unknown indication
     Dosage: UNK
  25. CHOLECALCIFEROL [Concomitant]
     Active Substance: CHOLECALCIFEROL
     Dosage: UNK
  26. CHOLECALCIFEROL [Concomitant]
     Active Substance: CHOLECALCIFEROL
     Dosage: UNK
  27. DENOSUMAB [Concomitant]
     Active Substance: DENOSUMAB
     Route: 065
     Dates: end: 201708
  28. DENOSUMAB [Concomitant]
     Active Substance: DENOSUMAB
     Route: 065
     Dates: end: 201708
  29. DENOSUMAB [Concomitant]
     Active Substance: DENOSUMAB
     Route: 065
     Dates: end: 201708
  30. DENOSUMAB [Concomitant]
     Active Substance: DENOSUMAB
     Route: 065
     Dates: end: 201708
  31. EPLERENONE [Concomitant]
     Active Substance: EPLERENONE
     Indication: Product used for unknown indication
     Dosage: UNK
  32. EPLERENONE [Concomitant]
     Active Substance: EPLERENONE
     Dosage: UNK
  33. EPLERENONE [Concomitant]
     Active Substance: EPLERENONE
     Dosage: UNK
  34. EPLERENONE [Concomitant]
     Active Substance: EPLERENONE
     Dosage: UNK
  35. AMINOPHYLLINE\QUININE SULFATE [Concomitant]
     Active Substance: AMINOPHYLLINE\QUININE SULFATE
     Indication: Product used for unknown indication
     Dosage: UNK
  36. AMINOPHYLLINE\QUININE SULFATE [Concomitant]
     Active Substance: AMINOPHYLLINE\QUININE SULFATE
     Dosage: UNK
  37. AMINOPHYLLINE\QUININE SULFATE [Concomitant]
     Active Substance: AMINOPHYLLINE\QUININE SULFATE
     Dosage: UNK
  38. AMINOPHYLLINE\QUININE SULFATE [Concomitant]
     Active Substance: AMINOPHYLLINE\QUININE SULFATE
     Dosage: UNK
  39. PANTOPRAZOLE [Concomitant]
     Active Substance: PANTOPRAZOLE
     Indication: Product used for unknown indication
     Dosage: UNK
  40. PANTOPRAZOLE [Concomitant]
     Active Substance: PANTOPRAZOLE
     Dosage: UNK
  41. PANTOPRAZOLE [Concomitant]
     Active Substance: PANTOPRAZOLE
     Dosage: UNK
  42. PANTOPRAZOLE [Concomitant]
     Active Substance: PANTOPRAZOLE
     Dosage: UNK
  43. PREDNISOLONE [Concomitant]
     Active Substance: PREDNISOLONE
  44. RAMIPRIL [Concomitant]
     Active Substance: RAMIPRIL
     Indication: Product used for unknown indication
     Dosage: UNK
     Route: 065
  45. RAMIPRIL [Concomitant]
     Active Substance: RAMIPRIL
     Dosage: UNK
     Route: 065
  46. RAMIPRIL [Concomitant]
     Active Substance: RAMIPRIL
     Dosage: UNK
     Route: 065
  47. RAMIPRIL [Concomitant]
     Active Substance: RAMIPRIL
     Dosage: UNK
     Route: 065
  48. TORSEMIDE [Concomitant]
     Active Substance: TORSEMIDE
     Indication: Product used for unknown indication
     Dosage: UNK
  49. TORSEMIDE [Concomitant]
     Active Substance: TORSEMIDE
     Dosage: UNK
  50. TORSEMIDE [Concomitant]
     Active Substance: TORSEMIDE
     Dosage: UNK
  51. TORSEMIDE [Concomitant]
     Active Substance: TORSEMIDE
     Dosage: UNK
  52. ALBUTEROL SULFATE [Concomitant]
     Active Substance: ALBUTEROL SULFATE
     Indication: Product used for unknown indication
     Dosage: UNK
  53. ALBUTEROL SULFATE [Concomitant]
     Active Substance: ALBUTEROL SULFATE
     Dosage: UNK
  54. ALBUTEROL SULFATE [Concomitant]
     Active Substance: ALBUTEROL SULFATE
     Dosage: UNK
  55. ALBUTEROL SULFATE [Concomitant]
     Active Substance: ALBUTEROL SULFATE
     Dosage: UNK

REACTIONS (16)
  - Renal cyst [Unknown]
  - Upper respiratory tract infection [Recovered/Resolved]
  - Vitamin D deficiency [Recovered/Resolved]
  - Hepatic steatosis [Unknown]
  - Oral candidiasis [Unknown]
  - Impaired healing [Unknown]
  - Erysipelas [Unknown]
  - Pulmonary fibrosis [Unknown]
  - Joint effusion [Unknown]
  - Abscess [Unknown]
  - Agranulocytosis [Unknown]
  - Osteoarthritis [Unknown]
  - Influenza [Unknown]
  - Vertigo [Not Recovered/Not Resolved]
  - Rheumatoid arthritis [Recovered/Resolved]
  - Spinal stenosis [Unknown]

NARRATIVE: CASE EVENT DATE: 20180221
